FAERS Safety Report 6603828-2 (Version None)
Quarter: 2010Q1

REPORT INFORMATION
  Report Type: 
  Country: None (occurrence: None)
  Receive Date: 20100226
  Receipt Date: 20090211
  Transmission Date: 20100710
  Serious: No
  Sender: FDA-Public Use
  Company Number: A0768532A

PATIENT
  Age: 17 Year
  Sex: Female

DRUGS (1)
  1. LAMOTRIGINE [Suspect]
     Indication: BIPOLAR DISORDER
     Dosage: 25MG PER DAY
     Route: 048
     Dates: start: 20080328

REACTIONS (4)
  - DRUG EXPOSURE DURING PREGNANCY [None]
  - HYDROMETRA [None]
  - LIVE BIRTH [None]
  - WEIGHT INCREASED [None]
